APPROVED DRUG PRODUCT: PROMETRIUM
Active Ingredient: PROGESTERONE
Strength: 100MG
Dosage Form/Route: CAPSULE;ORAL
Application: N019781 | Product #001 | TE Code: AB
Applicant: ACERTIS PHARMACEUTICALS LLC
Approved: May 14, 1998 | RLD: Yes | RS: No | Type: RX